FAERS Safety Report 6476836-2 (Version None)
Quarter: 2009Q4

REPORT INFORMATION
  Report Type: 
  Country: None (occurrence: None)
  Receive Date: 20091119
  Receipt Date: 20090819
  Transmission Date: 20100525
  Serious: Yes (Other)
  Sender: FDA-Public Use
  Company Number: 2009SP021361

PATIENT
  Age: 23 Year
  Sex: Female

DRUGS (1)
  1. IMPLANON [Suspect]
     Indication: DRUG USE FOR UNKNOWN INDICATION
     Dosage: 1 DF;
     Dates: start: 20060101

REACTIONS (8)
  - CARDIOVASCULAR DISORDER [None]
  - COMPLICATION OF DEVICE INSERTION [None]
  - HEADACHE [None]
  - HEPATIC NEOPLASM [None]
  - IMPLANT SITE HAEMATOMA [None]
  - MENORRHAGIA [None]
  - MENSTRUATION IRREGULAR [None]
  - OVARIAN CYST [None]
